FAERS Safety Report 6664832-1 (Version None)
Quarter: 2010Q2

REPORT INFORMATION
  Report Type: 
  Country: None (occurrence: None)
  Receive Date: 20100402
  Receipt Date: 20100326
  Transmission Date: 20101027
  Serious: Yes (Hospitalization)
  Sender: FDA-Public Use
  Company Number: NL-BIOGENIDEC-2010BI001199

PATIENT
  Age: 45 Year
  Sex: Female

DRUGS (3)
  1. AVONEX [Suspect]
     Indication: MULTIPLE SCLEROSIS
     Route: 030
     Dates: start: 20040201, end: 20091016
  2. PREDNISONE TAB [Concomitant]
     Indication: MULTIPLE SCLEROSIS
  3. METOPROLOL TARTRATE [Concomitant]

REACTIONS (9)
  - BLOOD LACTATE DEHYDROGENASE DECREASED [None]
  - BLOOD LACTATE DEHYDROGENASE INCREASED [None]
  - HAEMATOCRIT DECREASED [None]
  - HAEMOGLOBIN DECREASED [None]
  - HAEMOLYSIS [None]
  - MALIGNANT HYPERTENSION [None]
  - RENAL IMPAIRMENT [None]
  - RETINOPATHY HYPERTENSIVE [None]
  - THROMBOCYTOPENIA [None]
